FAERS Safety Report 7046227-4 (Version None)
Quarter: 2010Q4

REPORT INFORMATION
  Report Type: 
  Country: None (occurrence: None)
  Receive Date: 20101014
  Receipt Date: 20101008
  Transmission Date: 20110411
  Serious: Yes (Hospitalization)
  Sender: FDA-Public Use
  Company Number: A0842663A

PATIENT
  Sex: Female

DRUGS (16)
  1. PROMACTA [Suspect]
     Indication: IDIOPATHIC THROMBOCYTOPENIC PURPURA
     Route: 048
     Dates: start: 20090427, end: 20100718
  2. CORTICOSTEROIDS [Concomitant]
     Indication: IDIOPATHIC THROMBOCYTOPENIC PURPURA
  3. DANAZOL [Concomitant]
     Indication: IDIOPATHIC THROMBOCYTOPENIC PURPURA
  4. GLYBURIDE [Concomitant]
  5. LOTREL [Concomitant]
  6. CLONIDINE [Concomitant]
  7. ATENOLOL [Concomitant]
  8. GLIPIZIDE [Concomitant]
  9. LANTUS [Concomitant]
  10. GLIMEPIRIDE [Concomitant]
  11. HYDROCHLOROTHIAZIDE [Concomitant]
  12. REGLAN [Concomitant]
  13. AUGMENTIN '125' [Concomitant]
  14. CYCLOPHOSPHAMIDE [Concomitant]
  15. UNKNOWN MEDICATION [Concomitant]
  16. MECLIZINE [Concomitant]

REACTIONS (6)
  - BLOOD ALKALINE PHOSPHATASE INCREASED [None]
  - DRUG INEFFECTIVE [None]
  - HAEMORRHAGE [None]
  - LIVER DISORDER [None]
  - PLATELET COUNT DECREASED [None]
  - SURGERY [None]
